FAERS Safety Report 25295965 (Version 1)
Quarter: 2025Q2

REPORT INFORMATION
  Report Type: Spontaneous
  Country: GB (occurrence: GB)
  Receive Date: 20250511
  Receipt Date: 20250511
  Transmission Date: 20250716
  Serious: Yes (Other)
  Sender: DEXCEL
  Company Number: None

PATIENT
  Age: 71 Year
  Sex: Female

DRUGS (23)
  1. RAMIPRIL [Concomitant]
     Active Substance: RAMIPRIL
  2. Promethazine hydrochloride 25 mg tabletsPROMETHAZINE HYDROCHLORIDE ... [Concomitant]
  3. SalamolSALAMOL (Specific MP Group PGR5418025) [Concomitant]
  4. OMEPRAZOLE [Suspect]
     Active Substance: OMEPRAZOLE
  5. BENDROFLUMETHIAZIDE [Suspect]
     Active Substance: BENDROFLUMETHIAZIDE
  6. spironolactoneSPIRONOLACTONE (Specific Substance SUB435) [Concomitant]
  7. FUROSEMIDE [Concomitant]
     Active Substance: FUROSEMIDE
  8. ROSUVASTATIN [Concomitant]
     Active Substance: ROSUVASTATIN
  9. DigoxinDIGOXIN (Specific Substance SUB4897) [Concomitant]
  10. AMLODIPINE [Concomitant]
     Active Substance: AMLODIPINE BESYLATE
  11. Folic AcidFOLIC ACID (Specific Substance SUB5909) [Concomitant]
  12. Evacal-D3 1500 mg / 400 unit chewable tablets 1EVACAL D3 CHEWABLE (... [Concomitant]
  13. Paracetamol 500 mg tabletsPARACETAMOL (Specific Substance SUB155) [Concomitant]
  14. Trimbow 87 / 5 / 9 micrograms / dose inhalerTRIMBOW (Specific MP Gr... [Concomitant]
  15. MIRTAZAPINE [Suspect]
     Active Substance: MIRTAZAPINE
  16. VENLAFAXINE [Suspect]
     Active Substance: VENLAFAXINE HYDROCHLORIDE
     Dosage: VENLAFAXINE 225 MG MODIFIED-RELEASE TABLETS ONE TO BE TAKEN EACH DAY WITH FOOD - VL1
  17. TimololTIMOLOL (Specific Substance SUB535) [Concomitant]
  18. PropranololPROPRANOLOL (Specific Substance SUB312) [Concomitant]
  19. OlanzapineOLANZAPINE (Specific Substance SUB7300) [Concomitant]
  20. MebeverineMEBEVERINE (Specific Substance SUB8144) [Concomitant]
  21. CarbocisteineCARBOCISTEINE (Specific Substance SUB1506) [Concomitant]
  22. SunVit-D3 1,000 unit capsulesVITAMIN D3 [Concomitant]
  23. Co-codamol 30 mg / 500 mg capsulesCO-CODAMOL [Concomitant]

REACTIONS (1)
  - Hyponatraemia [Recovered/Resolved]
